FAERS Safety Report 6654623-X (Version None)
Quarter: 2010Q1

REPORT INFORMATION
  Report Type: 
  Country: None (occurrence: None)
  Receive Date: 20100326
  Receipt Date: 20100324
  Transmission Date: 20100710
  Serious: Yes (Life-Threatening, Hospitalization)
  Sender: FDA-Public Use
  Company Number: JP-ABBOTT-10P-087-0618614-00

PATIENT
  Sex: Male
  Weight: 78 kg

DRUGS (10)
  1. HUMIRA [Suspect]
     Indication: RHEUMATOID ARTHRITIS
     Route: 058
     Dates: start: 20091019, end: 20091230
  2. BUCILLAMINE [Concomitant]
     Indication: RHEUMATOID ARTHRITIS
     Route: 048
     Dates: start: 20080109
  3. METHOTREXATE [Concomitant]
     Indication: RHEUMATOID ARTHRITIS
     Route: 048
     Dates: start: 20080129
  4. OMEPRAZOLE [Concomitant]
     Indication: GASTRIC DISORDER
     Route: 048
     Dates: start: 20080425
  5. BETAMETHASONE [Concomitant]
     Indication: RHEUMATOID ARTHRITIS
     Route: 048
     Dates: start: 20081212
  6. INDOMETACIN FARNESIL [Concomitant]
     Indication: RHEUMATOID ARTHRITIS
     Route: 048
     Dates: start: 20080119
  7. TOCOPHEROL CONCENTRATE CAP [Concomitant]
     Indication: RHEUMATOID ARTHRITIS
     Route: 048
     Dates: start: 20080119
  8. TROXIPIDE [Concomitant]
     Indication: GASTRIC DISORDER
     Route: 048
     Dates: start: 20080119
  9. AURANOFIN [Concomitant]
     Indication: RHEUMATOID ARTHRITIS
     Dates: start: 20080109
  10. DICLOFENAC SODIUM [Concomitant]
     Indication: RHEUMATOID ARTHRITIS
     Dosage: SUPPOSITORY, ONCE DAILY
     Route: 054
     Dates: start: 20090420

REACTIONS (3)
  - ARTHRALGIA [None]
  - CELLULITIS [None]
  - RENAL IMPAIRMENT [None]
